FAERS Safety Report 10046665 (Version 1)
Quarter: 2014Q1

REPORT INFORMATION
  Report Type: Report from Study
  Country: US (occurrence: US)
  Receive Date: 20140331
  Receipt Date: 20140331
  Transmission Date: 20141002
  Serious: Yes (Other)
  Sender: FDA-Public Use
  Company Number: US-ROCHE-1367681

PATIENT
  Sex: Male
  Weight: 53 kg

DRUGS (2)
  1. NUTROPIN AQ [Suspect]
     Indication: GROWTH HORMONE DEFICIENCY
     Dosage: Q HS
     Route: 058
     Dates: end: 20131118
  2. NUTROPIN AQ [Suspect]
     Dosage: Q HS
     Route: 058
     Dates: start: 20131118

REACTIONS (2)
  - Attention deficit/hyperactivity disorder [Unknown]
  - Arthralgia [Unknown]
